FAERS Safety Report 10576125 (Version 1)
Quarter: 2014Q4

REPORT INFORMATION
  Report Type: Spontaneous
  Country: US (occurrence: None)
  Receive Date: 20141107
  Receipt Date: 20141107
  Transmission Date: 20150529
  Serious: Yes (Hospitalization)
  Sender: FDA-Public Use
  Company Number: PR 1955

PATIENT
  Age: 79 Year
  Sex: Male

DRUGS (1)
  1. ZIOPTAN [Suspect]
     Active Substance: TAFLUPROST
     Indication: NORMAL TENSION GLAUCOMA
     Dosage: 2 GTT
     Dates: start: 20101109, end: 20110407

REACTIONS (1)
  - Deafness [None]

NARRATIVE: CASE EVENT DATE: 20110402
